FAERS Safety Report 20637880 (Version 1)
Quarter: 2022Q1

REPORT INFORMATION
  Report Type: Spontaneous
  Country: US (occurrence: None)
  Receive Date: 20220324
  Receipt Date: 20220324
  Transmission Date: 20220423
  Serious: Yes (Hospitalization, Other)
  Sender: FDA-Public Use
  Company Number: None

PATIENT
  Age: 3 Day
  Sex: Male
  Weight: 3.8 kg

DRUGS (7)
  1. BUPROPION [Suspect]
     Active Substance: BUPROPION
  2. OLANZAPINE [Suspect]
     Active Substance: OLANZAPINE
  3. LAMOTRIGINE [Suspect]
     Active Substance: LAMOTRIGINE
  4. SERTRALINE [Suspect]
     Active Substance: SERTRALINE HYDROCHLORIDE
  5. ARIPIPRAZOLE [Suspect]
     Active Substance: ARIPIPRAZOLE
  6. OMEPRAZOLE [Suspect]
     Active Substance: OMEPRAZOLE
  7. CETIRIZINE [Suspect]
     Active Substance: CETIRIZINE HYDROCHLORIDE

REACTIONS (1)
  - Failure to thrive [None]

NARRATIVE: CASE EVENT DATE: 20210211
